FAERS Safety Report 25072296 (Version 1)
Quarter: 2025Q1

REPORT INFORMATION
  Report Type: Spontaneous
  Country: US (occurrence: US)
  Receive Date: 20250313
  Receipt Date: 20250313
  Transmission Date: 20250408
  Serious: No
  Sender: BOEHRINGER INGELHEIM
  Company Number: US-BoehringerIngelheim-2025-BI-013928

PATIENT
  Sex: Male

DRUGS (2)
  1. SPEVIGO [Suspect]
     Active Substance: SPESOLIMAB-SBZO
     Indication: Pyoderma gangrenosum
  2. SPEVIGO [Suspect]
     Active Substance: SPESOLIMAB-SBZO

REACTIONS (2)
  - Costochondritis [Recovered/Resolved]
  - Intentional product use issue [Unknown]
